FAERS Safety Report 13570016 (Version 13)
Quarter: 2018Q1

REPORT INFORMATION
  Report Type: Spontaneous
  Country: US (occurrence: US)
  Receive Date: 20170522
  Receipt Date: 20180216
  Transmission Date: 20180508
  Serious: Yes (Hospitalization)
  Sender: FDA-Public Use
  Company Number: US-ACTELION-A-US2017-154044

PATIENT
  Age: 43 Year
  Sex: Female

DRUGS (9)
  1. VELETRI [Suspect]
     Active Substance: EPOPROSTENOL
     Dosage: 9.5 NG/KG, PER MIN
     Route: 042
  2. OPSUMIT [Suspect]
     Active Substance: MACITENTAN
     Indication: PULMONARY ARTERIAL HYPERTENSION
     Dosage: 10 MG, QD
     Route: 048
     Dates: start: 20170401
  3. POTASSIUM [Concomitant]
     Active Substance: POTASSIUM
  4. LASIX [Concomitant]
     Active Substance: FUROSEMIDE
  5. SILDENAFIL. [Concomitant]
     Active Substance: SILDENAFIL
     Indication: PULMONARY ARTERIAL HYPERTENSION
  6. OXYGEN. [Concomitant]
     Active Substance: OXYGEN
  7. VELETRI [Suspect]
     Active Substance: EPOPROSTENOL
     Indication: PULMONARY ARTERIAL HYPERTENSION
     Dosage: 26 NG/KG, PER MIN
     Route: 042
     Dates: start: 20170503
  8. VELETRI [Suspect]
     Active Substance: EPOPROSTENOL
     Dosage: 12 NG/KG, PER MIN
     Route: 042
     Dates: start: 20170305
  9. VELETRI [Suspect]
     Active Substance: EPOPROSTENOL
     Dosage: 27 NG/KG, PER MIN
     Route: 042
     Dates: start: 20170629

REACTIONS (20)
  - Right ventricular failure [Unknown]
  - Pain in jaw [Not Recovered/Not Resolved]
  - Pulmonary hypertension [Unknown]
  - Blister [Not Recovered/Not Resolved]
  - Lung transplant [Unknown]
  - Condition aggravated [Unknown]
  - Nausea [Not Recovered/Not Resolved]
  - Headache [Not Recovered/Not Resolved]
  - Flushing [Not Recovered/Not Resolved]
  - Paracentesis [Unknown]
  - Fluid retention [Not Recovered/Not Resolved]
  - Aspiration pleural cavity [Unknown]
  - Dyspnoea [Unknown]
  - Decreased appetite [Unknown]
  - Diarrhoea [Not Recovered/Not Resolved]
  - Hypersensitivity [Not Recovered/Not Resolved]
  - Catheter site rash [Not Recovered/Not Resolved]
  - Vomiting [Not Recovered/Not Resolved]
  - Oedema [Not Recovered/Not Resolved]
  - Malaise [Recovering/Resolving]

NARRATIVE: CASE EVENT DATE: 20170516
